FAERS Safety Report 13931463 (Version 1)
Quarter: 2017Q3

REPORT INFORMATION
  Report Type: Report from Study
  Country: US (occurrence: US)
  Receive Date: 20170903
  Receipt Date: 20170903
  Transmission Date: 20171127
  Serious: Yes (Death)
  Sender: FDA-Public Use
  Company Number: PHEH2017US028260

PATIENT
  Age: 2 Year
  Sex: Male

DRUGS (1)
  1. VOTRIENT [Suspect]
     Active Substance: PAZOPANIB HYDROCHLORIDE
     Indication: HEPATIC CANCER
     Dosage: 20 MG, QD
     Route: 048
     Dates: start: 20150925

REACTIONS (1)
  - Death [Fatal]

NARRATIVE: CASE EVENT DATE: 20151106
